FAERS Safety Report 8207213-1 (Version None)
Quarter: 2012Q1

REPORT INFORMATION
  Report Type: 
  Country: None (occurrence: None)
  Receive Date: 20120314
  Receipt Date: 20120310
  Transmission Date: 20120608
  Serious: No
  Sender: FDA-Public Use
  Company Number: US-PFIZER INC-2012063739

PATIENT
  Sex: Female
  Weight: 106 kg

DRUGS (12)
  1. ALBUTEROL [Suspect]
     Indication: ASTHMA
     Dosage: UNK
  2. FLUOXETINE HYDROCHLORIDE [Suspect]
     Indication: DEPRESSION
     Dosage: 40 MG, DAILY
     Route: 048
  3. DIAZEPAM [Suspect]
     Indication: ANXIETY
  4. PREDNISONE [Suspect]
     Indication: COUGH
     Dosage: UNK
  5. DIAZEPAM [Suspect]
     Indication: DEPRESSION
     Dosage: 5 MG, 2X/DAY
     Route: 048
  6. ALBUTEROL SULFATE [Suspect]
     Indication: ASTHMA
     Dosage: AS NEEDED
  7. LIPITOR [Suspect]
     Indication: BLOOD CHOLESTEROL INCREASED
     Dosage: UNK
     Route: 048
  8. METFORMIN HCL [Suspect]
     Indication: DIABETES MELLITUS
     Dosage: 500 MG, 2X/DAY
     Route: 048
  9. ZOLPIDEM TARTRATE [Suspect]
     Indication: SLEEP DISORDER
     Dosage: 10 MG, DAILY
     Route: 048
  10. FLUOXETINE HYDROCHLORIDE [Suspect]
     Indication: ANXIETY
  11. SINGULAIR [Suspect]
     Indication: ASTHMA
     Dosage: 10 MG, DAILY
     Route: 048
  12. INDOMETHACIN [Suspect]
     Indication: GOUT
     Dosage: 50 MG, AS NEEDED IN EVERY 8 TO 12 HOURS
     Route: 048

REACTIONS (1)
  - MUSCLE SPASMS [None]
